FAERS Safety Report 20561441 (Version 1)
Quarter: 2022Q1

REPORT INFORMATION
  Report Type: Report from Study
  Country: BR (occurrence: BR)
  Receive Date: 20220307
  Receipt Date: 20220307
  Transmission Date: 20220424
  Serious: Yes (Other)
  Sender: FDA-Public Use
  Company Number: BR-NOVARTISPH-NVSC2021BR108050

PATIENT
  Sex: Female

DRUGS (1)
  1. EXELON [Suspect]
     Active Substance: RIVASTIGMINE TARTRATE
     Indication: Product used for unknown indication
     Dosage: 28 CAPSULES (1 MONTH AGO)
     Route: 065

REACTIONS (3)
  - Spinal disorder [Recovering/Resolving]
  - Headache [Recovered/Resolved]
  - Intervertebral disc protrusion [Unknown]
